FAERS Safety Report 15939751 (Version 2)
Quarter: 2019Q1

REPORT INFORMATION
  Report Type: Spontaneous
  Country: GB (occurrence: GB)
  Receive Date: 20190208
  Receipt Date: 20190212
  Transmission Date: 20190417
  Serious: Yes (Death)
  Sender: FDA-Public Use
  Company Number: GB-PFIZER INC-2019053457

PATIENT
  Age: 46 Year
  Sex: Male

DRUGS (2)
  1. PREGABALIN. [Suspect]
     Active Substance: PREGABALIN
     Dosage: UNK
  2. HEROIN [Interacting]
     Active Substance: DIAMORPHINE
     Dosage: UNK

REACTIONS (5)
  - Hypoxia [Fatal]
  - Overdose [Fatal]
  - Multiple organ dysfunction syndrome [Fatal]
  - Drug abuse [Fatal]
  - Drug interaction [Fatal]
